FAERS Safety Report 12743343 (Version 1)
Quarter: 2016Q3

REPORT INFORMATION
  Report Type: Spontaneous
  Country: US (occurrence: US)
  Receive Date: 20160914
  Receipt Date: 20160914
  Transmission Date: 20161109
  Serious: No
  Sender: FDA-Public Use
  Company Number: US-ELI_LILLY_AND_COMPANY-US201609000789

PATIENT
  Sex: Female
  Weight: 94.8 kg

DRUGS (15)
  1. TOPROL XL [Concomitant]
     Active Substance: METOPROLOL SUCCINATE
     Dosage: 1 DF, QD
     Route: 048
  2. PROCTOFOAM                         /00622802/ [Concomitant]
     Dosage: 1 DF, PRN
     Route: 065
  3. PROVENTIL HFA                      /00139501/ [Concomitant]
     Dosage: 2 DF, PRN
     Route: 065
  4. LOMOTIL [Concomitant]
     Active Substance: ATROPINE SULFATE\DIPHENOXYLATE HYDROCHLORIDE
     Indication: DIARRHOEA
     Dosage: 1 DF, PRN
     Route: 048
  5. XANAX [Concomitant]
     Active Substance: ALPRAZOLAM
     Dosage: 1 DF, PRN
     Route: 048
  6. ZETONNA [Concomitant]
     Active Substance: CICLESONIDE
     Dosage: 37 UG, QD
     Route: 045
  7. FARXIGA [Concomitant]
     Active Substance: DAPAGLIFLOZIN PROPANEDIOL
     Dosage: 1 DF, QD
     Route: 048
  8. COZAAR [Concomitant]
     Active Substance: LOSARTAN POTASSIUM
     Dosage: 1 DF, QD
  9. ZOFRAN [Concomitant]
     Active Substance: ONDANSETRON HYDROCHLORIDE
     Indication: NAUSEA
     Dosage: 1 DF, PRN
     Route: 048
  10. TRULICITY [Suspect]
     Active Substance: DULAGLUTIDE
     Indication: PRODUCT USED FOR UNKNOWN INDICATION
     Dosage: 0.5 ML, WEEKLY (1/W)
     Route: 058
  11. MYCELEX [Concomitant]
     Active Substance: CLOTRIMAZOLE
     Dosage: 1 DF, OTHER
     Route: 050
  12. NEXIUM [Concomitant]
     Active Substance: ESOMEPRAZOLE MAGNESIUM
     Dosage: 1 DF, QD
     Route: 048
  13. GLUCOTROL [Concomitant]
     Active Substance: GLIPIZIDE
     Dosage: 1 DF, QD
  14. JANUMET [Concomitant]
     Active Substance: METFORMIN HYDROCHLORIDE\SITAGLIPTIN PHOSPHATE
     Dosage: 1 DF, BID
     Route: 048
  15. NEURONTIN [Concomitant]
     Active Substance: GABAPENTIN
     Dosage: UNK, UNKNOWN
     Route: 065

REACTIONS (3)
  - Drug dose omission [Unknown]
  - Fatigue [Unknown]
  - Pain in extremity [Recovering/Resolving]
